FAERS Safety Report 9085599 (Version 1)
Quarter: 2013Q1

REPORT INFORMATION
  Report Type: Spontaneous
  Country: US (occurrence: US)
  Receive Date: 20130131
  Receipt Date: 20130131
  Transmission Date: 20140127
  Serious: No
  Sender: FDA-Public Use
  Company Number: US-ABBOTT-12P-163-0997671-00

PATIENT
  Sex: Female

DRUGS (3)
  1. HUMIRA [Suspect]
     Indication: RHEUMATOID ARTHRITIS
     Dates: start: 2011, end: 2012
  2. HUMIRA [Suspect]
     Dates: start: 201210
  3. HUMIRA [Suspect]
     Dosage: PRE-FILLED SYRINGE
     Dates: start: 2012, end: 201210

REACTIONS (1)
  - Application site pain [Not Recovered/Not Resolved]
